FAERS Safety Report 7985495-9 (Version None)
Quarter: 2011Q4

REPORT INFORMATION
  Report Type: 
  Country: None (occurrence: None)
  Receive Date: 20111214
  Receipt Date: 20111129
  Transmission Date: 20120403
  Serious: Yes (Death)
  Sender: FDA-Public Use
  Company Number: B0767601A

PATIENT
  Age: 29 Year
  Sex: Female

DRUGS (3)
  1. VALPROIC ACID [Concomitant]
  2. TOPIRAMATE [Concomitant]
  3. LAMOTRIGINE [Suspect]
     Indication: EPILEPSY
     Dosage: 125 MG

REACTIONS (2)
  - SUDDEN UNEXPLAINED DEATH IN EPILEPSY [None]
  - DRUG LEVEL BELOW THERAPEUTIC [None]
